FAERS Safety Report 5640849-0 (Version None)
Quarter: 2008Q1

REPORT INFORMATION
  Report Type: 
  Country: None (occurrence: None)
  Receive Date: 20080225
  Receipt Date: 20080219
  Transmission Date: 20080703
  Serious: Yes (Other)
  Sender: FDA-Public Use
  Company Number: CAP08000061

PATIENT
  Age: 79 Year
  Sex: Female

DRUGS (1)
  1. DIDROCAL(ETIDRONATE DISODIUMICALCIUM CARBONATE CYCLICAL) TABLET, 400/1 [Suspect]
     Indication: OSTEOPOROSIS
     Dosage: ORAL
     Route: 048

REACTIONS (6)
  - DYSGEUSIA [None]
  - GINGIVAL DISORDER [None]
  - IMPAIRED HEALING [None]
  - LOOSE TOOTH [None]
  - TONGUE DISORDER [None]
  - TOOTH EXTRACTION [None]
